FAERS Safety Report 6490564-9 (Version None)
Quarter: 2009Q4

REPORT INFORMATION
  Report Type: 
  Country: None (occurrence: None)
  Receive Date: 20091210
  Receipt Date: 20091210
  Transmission Date: 20100525
  Serious: Yes (Life-Threatening)
  Sender: FDA-Public Use
  Company Number: None

PATIENT
  Age: 80 Year
  Sex: Male
  Weight: 70 kg

DRUGS (4)
  1. ENALAPRIL MALEATE [Suspect]
     Indication: HYPERTENSION
     Dosage: 10 MG B.I.D.
  2. SOTALOL HCL [Concomitant]
  3. ATORVASTATIN OMEPRAZOLE [Concomitant]
  4. FERROUS SULFATE TAB [Concomitant]

REACTIONS (4)
  - ASTHENIA [None]
  - BLOOD SODIUM DECREASED [None]
  - GRAND MAL CONVULSION [None]
  - MALAISE [None]
